FAERS Safety Report 9808029 (Version 1)
Quarter: 2014Q1

REPORT INFORMATION
  Report Type: Spontaneous
  Country: CR (occurrence: CR)
  Receive Date: 20140110
  Receipt Date: 20140110
  Transmission Date: 20141002
  Serious: Yes (Other)
  Sender: FDA-Public Use
  Company Number: CR-GLAXOSMITHKLINE-A1052929A

PATIENT
  Age: 47 Year
  Sex: Female

DRUGS (1)
  1. PAXIL [Suspect]
     Indication: ANXIETY DISORDER
     Dosage: 20MG PER DAY
     Route: 048
     Dates: start: 20130915, end: 20131116

REACTIONS (6)
  - Convulsion [Recovered/Resolved]
  - Loss of consciousness [Recovered/Resolved]
  - Disorientation [Recovered/Resolved]
  - Somnolence [Recovered/Resolved]
  - Urinary incontinence [Recovered/Resolved]
  - Blood electrolytes abnormal [Recovered/Resolved]
